FAERS Safety Report 18994539 (Version 9)
Quarter: 2021Q3

REPORT INFORMATION
  Report Type: Report from Study
  Country: KR (occurrence: KR)
  Receive Date: 20210310
  Receipt Date: 20210802
  Transmission Date: 20211014
  Serious: Yes (Hospitalization)
  Sender: FDA-Public Use
  Company Number: KR-EISAI MEDICAL RESEARCH-EC-2021-089117

PATIENT
  Age: 59 Year
  Sex: Male
  Weight: 67 kg

DRUGS (19)
  1. OMACOR [Concomitant]
     Active Substance: OMEGA-3-ACID ETHYL ESTERS
     Dates: start: 201801
  2. PEMBROLIZUMAB. [Suspect]
     Active Substance: PEMBROLIZUMAB
     Indication: BILE DUCT CANCER
     Route: 042
     Dates: start: 20210122, end: 20210122
  3. TANTUM [BENZYDAMINE HYDROCHLORIDE] [Concomitant]
     Dates: start: 20210122
  4. MACPERAN [Concomitant]
     Active Substance: METOCLOPRAMIDE HYDROCHLORIDE
     Dates: start: 20210122
  5. PEMBROLIZUMAB. [Suspect]
     Active Substance: PEMBROLIZUMAB
     Route: 042
     Dates: start: 20210305, end: 20210305
  6. LIPITOR [Concomitant]
     Active Substance: ATORVASTATIN CALCIUM
     Dates: start: 201801
  7. LENVATINIB [Suspect]
     Active Substance: LENVATINIB
     Indication: BILE DUCT CANCER
     Route: 048
     Dates: start: 20210122, end: 20210224
  8. PEMBROLIZUMAB. [Suspect]
     Active Substance: PEMBROLIZUMAB
     Route: 042
     Dates: start: 20210215, end: 20210215
  9. MYPOL [CODEINE PHOSPHATE;IBUPROFEN;PARACETAMOL] [Concomitant]
     Dates: start: 20210122
  10. NYSTATIN. [Concomitant]
     Active Substance: NYSTATIN
     Dates: start: 20210215, end: 20210302
  11. MEGACE F [Concomitant]
     Dates: start: 20210215
  12. PEMBROLIZUMAB. [Suspect]
     Active Substance: PEMBROLIZUMAB
     Route: 042
     Dates: start: 20210324
  13. NORVASC [Concomitant]
     Active Substance: AMLODIPINE BESYLATE
     Dates: start: 201801
  14. LYRICA [Concomitant]
     Active Substance: PREGABALIN
     Dates: start: 20201228
  15. LENVATINIB [Suspect]
     Active Substance: LENVATINIB
     Route: 048
     Dates: start: 20210318
  16. TEICONIN [Concomitant]
     Route: 042
     Dates: start: 20210225, end: 20210226
  17. TAZOPERAN [Concomitant]
     Route: 042
     Dates: start: 20210225, end: 20210306
  18. VASTINAN MR [Concomitant]
     Dates: start: 201801
  19. LYRICA [Concomitant]
     Active Substance: PREGABALIN
     Dates: start: 20201229

REACTIONS (1)
  - Abdominal pain [Recovered/Resolved]

NARRATIVE: CASE EVENT DATE: 20210222
